FAERS Safety Report 6612591-0 (Version None)
Quarter: 2010Q1

REPORT INFORMATION
  Report Type: 
  Country: None (occurrence: None)
  Receive Date: 20100303
  Receipt Date: 20100226
  Transmission Date: 20100710
  Serious: Yes (Death)
  Sender: FDA-Public Use
  Company Number: GB-BAYER-201014930GPV

PATIENT
  Age: 90 Year
  Sex: Female

DRUGS (1)
  1. CIPROXIN [Suspect]
     Indication: URINARY TRACT INFECTION
     Route: 040
     Dates: start: 20100130, end: 20100131

REACTIONS (1)
  - DEATH [None]
